FAERS Safety Report 9439954 (Version 1)
Quarter: 2013Q3

REPORT INFORMATION
  Report Type: Spontaneous
  Country: JP (occurrence: JP)
  Receive Date: 20130805
  Receipt Date: 20130805
  Transmission Date: 20140515
  Serious: Yes (Other)
  Sender: FDA-Public Use
  Company Number: JP-ELI_LILLY_AND_COMPANY-JP201307010216

PATIENT
  Age: 80 Year
  Sex: Female

DRUGS (1)
  1. FORTEO [Suspect]
     Route: 058

REACTIONS (1)
  - Laryngeal polyp [Unknown]
